FAERS Safety Report 9986414 (Version 1)
Quarter: 2014Q1

REPORT INFORMATION
  Report Type: Report from Study
  Country: US (occurrence: US)
  Receive Date: 20140307
  Receipt Date: 20140307
  Transmission Date: 20141002
  Serious: No
  Sender: FDA-Public Use
  Company Number: US-ABBVIE-13P-163-1087036-00

PATIENT
  Age: 75 Year
  Sex: Male

DRUGS (12)
  1. HUMIRA [Suspect]
     Indication: ANKYLOSING SPONDYLITIS
     Dates: start: 20130409
  2. HYDROXYCHLOROQUINE [Concomitant]
     Indication: RHEUMATOID ARTHRITIS
  3. DOXAZOSIN [Concomitant]
     Indication: BENIGN PROSTATIC HYPERPLASIA
  4. ISOSORBIDE DINITRATE [Concomitant]
     Indication: VASODILATATION
  5. CARVEDILOL [Concomitant]
     Indication: BLOOD PRESSURE
  6. CLOPIDOGREL [Concomitant]
     Indication: ANTICOAGULANT THERAPY
  7. GABAPENTIN [Concomitant]
     Indication: NEUROPATHY PERIPHERAL
  8. VITAMIN C [Concomitant]
     Indication: PRODUCT USED FOR UNKNOWN INDICATION
  9. VITAMIN D [Concomitant]
     Indication: PRODUCT USED FOR UNKNOWN INDICATION
  10. ASPIRIN [Concomitant]
     Indication: PRODUCT USED FOR UNKNOWN INDICATION
     Dosage: EVERY MONDAY, WEDNESDAY, AND FRIDAY
  11. SODIUM BICARBONATE [Concomitant]
     Indication: ANTACID THERAPY
  12. AMLODIPINE [Concomitant]
     Indication: BLOOD PRESSURE

REACTIONS (3)
  - Wrong technique in drug usage process [Recovered/Resolved]
  - Injury associated with device [Recovered/Resolved]
  - Injection site haemorrhage [Recovered/Resolved]
